FAERS Safety Report 23134421 (Version 1)
Quarter: 2023Q4

REPORT INFORMATION
  Report Type: Spontaneous
  Country: CN (occurrence: CN)
  Receive Date: 20231101
  Receipt Date: 20231101
  Transmission Date: 20240109
  Serious: Yes (Other)
  Sender: FDA-Public Use
  Company Number: CN-FreseniusKabi-FK202317275

PATIENT
  Age: 30 Year
  Sex: Male

DRUGS (2)
  1. FAT EMULSION NOS [Suspect]
     Active Substance: EGG PHOSPHOLIPIDS\SAFFLOWER OIL\SOYBEAN OIL
     Indication: Nutritional supplementation
     Route: 041
  2. ROCEPHIN [Concomitant]
     Active Substance: CEFTRIAXONE SODIUM
     Indication: Antiinflammatory therapy
     Dosage: INTRAVENOUS DRIP

REACTIONS (4)
  - Hallucinations, mixed [Recovered/Resolved]
  - Dysphoria [Recovered/Resolved]
  - Restlessness [Recovered/Resolved]
  - Disorganised speech [Recovered/Resolved]
